FAERS Safety Report 5647370-4 (Version None)
Quarter: 2008Q1

REPORT INFORMATION
  Report Type: 
  Country: None (occurrence: None)
  Receive Date: 20080131
  Receipt Date: 20071010
  Transmission Date: 20080703
  Serious: No
  Sender: FDA-Public Use
  Company Number: 163-21880-07101158

PATIENT
  Age: 47 Year
  Sex: Male

DRUGS (11)
  1. REVLIMID [Suspect]
     Indication: MULTIPLE MYELOMA
     Dosage: 24 MG, DAILY X 21 DAYS, ORAL
     Route: 048
     Dates: start: 20070102, end: 20070228
  2. VELCADE [Suspect]
     Indication: MULTIPLE MYELOMA
     Dates: end: 20070101
  3. MS CONTIN [Suspect]
     Indication: DRUG USE FOR UNKNOWN INDICATION
  4. QUINAPRIL HCL [Concomitant]
  5. PROTONIX [Concomitant]
  6. HYDROCHLOROTHIAZIDE [Concomitant]
  7. LORTAB [Concomitant]
  8. BACTRIM DC (BACTRIM) [Concomitant]
  9. SOLU-MEDROL [Concomitant]
  10. ASPIRIN [Concomitant]
  11. OXYCONTIN [Concomitant]

REACTIONS (2)
  - CONSTIPATION [None]
  - NEUROPATHY PERIPHERAL [None]
